FAERS Safety Report 8842158 (Version 1)
Quarter: 2012Q4

REPORT INFORMATION
  Report Type: 
  Country: JP (occurrence: JP)
  Receive Date: 20121016
  Receipt Date: 20121016
  Transmission Date: 20130627
  Serious: Yes (Death, Life-Threatening, Hospitalization)
  Sender: FDA-Public Use
  Company Number: PHHY2012JP078485

PATIENT
  Age: 82 Year
  Sex: Female

DRUGS (5)
  1. EXELON PATCH [Suspect]
     Indication: DEMENTIA ALZHEIMER^S TYPE
     Dosage: 4.5 mg, daily
     Route: 062
     Dates: start: 20110820, end: 20110917
  2. EXELON PATCH [Suspect]
     Dosage: 9 mg, Daily
     Route: 062
     Dates: start: 20110917, end: 20111017
  3. NORVASC [Concomitant]
     Route: 048
  4. MEVALOTIN [Concomitant]
     Route: 048
  5. EPADEL [Concomitant]
     Route: 048

REACTIONS (6)
  - Gastric cancer [Fatal]
  - Eating disorder [Fatal]
  - Pain [Fatal]
  - Haematemesis [Fatal]
  - General physical health deterioration [Fatal]
  - Pruritus [Recovered/Resolved]
